FAERS Safety Report 9303935 (Version 1)
Quarter: 2013Q2

REPORT INFORMATION
  Report Type: Spontaneous
  Country: DE (occurrence: DE)
  Receive Date: 20130522
  Receipt Date: 20130522
  Transmission Date: 20140414
  Serious: Yes (Death)
  Sender: FDA-Public Use
  Company Number: DE-BRISTOL-MYERS SQUIBB COMPANY-18899526

PATIENT
  Age: 86 Year
  Sex: Female

DRUGS (2)
  1. YERVOY [Suspect]
     Indication: CHOROID MELANOMA
  2. YERVOY [Suspect]
     Indication: METASTASES TO LIVER

REACTIONS (2)
  - Death [Fatal]
  - Diarrhoea [Unknown]
